FAERS Safety Report 9116008 (Version 1)
Quarter: 2013Q1

REPORT INFORMATION
  Report Type: Report from Study
  Country: DE (occurrence: DE)
  Receive Date: 20130225
  Receipt Date: 20130225
  Transmission Date: 20140127
  Serious: Yes (Death, Hospitalization)
  Sender: FDA-Public Use
  Company Number: DE-BRISTOL-MYERS SQUIBB COMPANY-15363955

PATIENT
  Age: 72 Year
  Sex: Male

DRUGS (2)
  1. IPILIMUMAB [Suspect]
     Indication: PROSTATE CANCER
     Route: 042
     Dates: start: 20101020, end: 20101110
  2. PREGABALIN [Concomitant]
     Dosage: PREGABALIN 75.
     Dates: start: 20101106

REACTIONS (9)
  - Sepsis [Fatal]
  - General physical health deterioration [Fatal]
  - Large intestine perforation [Recovered/Resolved with Sequelae]
  - Cholecystitis acute [Recovered/Resolved]
  - Pneumonia [Not Recovered/Not Resolved]
  - Abdominal pain upper [Recovered/Resolved with Sequelae]
  - Acute myocardial infarction [Recovered/Resolved with Sequelae]
  - Haemoglobin decreased [Recovered/Resolved]
  - Blood creatine phosphokinase increased [Recovered/Resolved]
